FAERS Safety Report 24080687 (Version 1)
Quarter: 2024Q3

REPORT INFORMATION
  Report Type: Spontaneous
  Country: JP (occurrence: JP)
  Receive Date: 20240711
  Receipt Date: 20240711
  Transmission Date: 20241016
  Serious: Yes (Other)
  Sender: ANI
  Company Number: JP-ANIPHARMA-2024-JP-000182

PATIENT
  Sex: Female

DRUGS (2)
  1. ARIMIDEX [Suspect]
     Active Substance: ANASTROZOLE
     Indication: Squamous cell breast carcinoma
     Dosage: 1 MG QD
     Route: 048
  2. VERZENIO [Concomitant]
     Active Substance: ABEMACICLIB

REACTIONS (2)
  - Encephalopathy [Unknown]
  - Encephalitis [Unknown]
